FAERS Safety Report 11734846 (Version 1)
Quarter: 2015Q4

REPORT INFORMATION
  Report Type: Spontaneous
  Country: US (occurrence: None)
  Receive Date: 20151112
  Receipt Date: 20151112
  Transmission Date: 20160304
  Serious: Yes (Other)
  Sender: FDA-Public Use
  Company Number: None

PATIENT
  Age: 4 Year
  Sex: Male
  Weight: 15.42 kg

DRUGS (5)
  1. ALLERGY MEDS (PRESCRIPTION) [Concomitant]
  2. CORTIZONE CREAMS [Concomitant]
  3. CHILDREN^S VITAMINS [Concomitant]
  4. AUVI-Q [Suspect]
     Active Substance: EPINEPHRINE
  5. ALBUTEROL. [Concomitant]
     Active Substance: ALBUTEROL

REACTIONS (3)
  - Product quality issue [None]
  - Device malfunction [None]
  - Incorrect dose administered by device [None]

NARRATIVE: CASE EVENT DATE: 20151030
